FAERS Safety Report 9860272 (Version 1)
Quarter: 2014Q1

REPORT INFORMATION
  Report Type: Spontaneous
  Country: US (occurrence: US)
  Receive Date: 20140201
  Receipt Date: 20140201
  Transmission Date: 20141002
  Serious: No
  Sender: FDA-Public Use
  Company Number: US-B.I. PHARMACEUTICALS,INC./RIDGEFIELD-2014-BI-03011BP

PATIENT
  Sex: Male
  Weight: 64 kg

DRUGS (1)
  1. FLOMAX CAPSULES [Suspect]
     Indication: DYSURIA

REACTIONS (1)
  - Drug hypersensitivity [Unknown]
